FAERS Safety Report 9530091 (Version 1)
Quarter: 2013Q3

REPORT INFORMATION
  Report Type: Report from Study
  Country: US (occurrence: US)
  Receive Date: 20130917
  Receipt Date: 20130917
  Transmission Date: 20140515
  Serious: Yes (Hospitalization)
  Sender: FDA-Public Use
  Company Number: US-ACTELION-A-NJ2013-88334

PATIENT
  Age: 19 Year
  Sex: Female

DRUGS (3)
  1. TRACLEER [Suspect]
     Indication: PULMONARY ARTERIAL HYPERTENSION
     Dosage: UNK
     Route: 048
     Dates: start: 20120914
  2. VIAGRA [Concomitant]
  3. COUMADIN [Concomitant]

REACTIONS (2)
  - Costochondritis [Recovering/Resolving]
  - Chest pain [Recovering/Resolving]
